FAERS Safety Report 18352342 (Version 3)
Quarter: 2024Q2

REPORT INFORMATION
  Report Type: Report from Study
  Country: ES (occurrence: ES)
  Receive Date: 20201007
  Receipt Date: 20240628
  Transmission Date: 20240716
  Serious: Yes (Life-Threatening, Hospitalization, Other)
  Sender: FDA-Public Use
  Company Number: ES-KRKA-ES2020K15125LIT

PATIENT
  Age: 64 Year
  Sex: Female
  Weight: 59 kg

DRUGS (16)
  1. MIRTAZAPINE [Suspect]
     Active Substance: MIRTAZAPINE
     Indication: Depression
     Dosage: 15 MILLIGRAM, ONCE A DAY
     Route: 048
  2. PANTOPRAZOLE [Suspect]
     Active Substance: PANTOPRAZOLE
     Indication: Gastritis
     Dosage: 80 MILLIGRAM, ONCE A DAY (DAILY DOSE: 80 MG MILLIGRAM(S) EVERY DAY)
     Route: 048
  3. TORSEMIDE [Suspect]
     Active Substance: TORSEMIDE
     Indication: Product used for unknown indication
     Dosage: UNK
     Route: 065
  4. ALECTINIB [Suspect]
     Active Substance: ALECTINIB
     Indication: Non-small cell lung cancer
     Dosage: 900 MILLIGRAM, ONCE A DAY
     Route: 048
  5. ALECTINIB [Suspect]
     Active Substance: ALECTINIB
     Indication: Product used for unknown indication
     Dosage: 1200 MILLIGRAM, ONCE A DAY
     Route: 048
  6. ALECTINIB [Suspect]
     Active Substance: ALECTINIB
     Dosage: 600 MILLIGRAM, ONCE A DAY
     Route: 048
  7. CALCIUM\CHOLECALCIFEROL [Suspect]
     Active Substance: CALCIUM\CHOLECALCIFEROL
     Indication: Product used for unknown indication
     Dosage: 2 DOSAGE FORM, ONCE A DAY
     Route: 048
  8. ENOXAPARIN SODIUM [Suspect]
     Active Substance: ENOXAPARIN SODIUM
     Indication: Pulmonary embolism
     Dosage: 1.2 MILLILITER, ONCE A DAY (DAILY DOSE: 1.2 ML MILLILITRE(S) EVERY DAY)
     Route: 058
     Dates: start: 20150101, end: 20150703
  9. DEXAMETHASONE [Suspect]
     Active Substance: DEXAMETHASONE
     Indication: Metastases to central nervous system
     Dosage: 4 MILLIGRAM, ONCE A DAY (DAILY DOSE: 4 MG MILLIGRAM(S) EVERY DAY)
     Route: 042
  10. NALOXONE HYDROCHLORIDE\OXYCODONE HYDROCHLORIDE [Suspect]
     Active Substance: NALOXONE HYDROCHLORIDE\OXYCODONE HYDROCHLORIDE
     Indication: Pain
     Dosage: 2 DOSAGE FORM, ONCE A DAY (DOSE: 10/5 MG)
     Route: 048
  11. NADROPARIN CALCIUM [Suspect]
     Active Substance: NADROPARIN CALCIUM
     Indication: Pulmonary embolism
     Dosage: 0.5 MILLILITER, ONCE A DAY (DAILY DOSE: 0.6 ML MILLILITRE(S) EVERY DAY)
     Route: 058
  12. OXYCODONE [Suspect]
     Active Substance: OXYCODONE\OXYCODONE HYDROCHLORIDE
     Indication: Product used for unknown indication
     Dosage: UNK
     Route: 065
  13. ZOPICLONE [Suspect]
     Active Substance: ZOPICLONE
     Indication: Insomnia
     Dosage: 7.5 MILLIGRAM, ONCE A DAY (DAILY DOSE: 7.5 MG MILLIGRAM(S) EVERY DAY)
     Route: 048
  14. TORSEMIDE [Suspect]
     Active Substance: TORSEMIDE
     Indication: Oedema
     Dosage: 5 MILLIGRAM, ONCE A DAY (DAILY DOSE: 5 MG MILLIGRAM(S) EVERY DAY)
     Route: 048
  15. NALOXONE [Suspect]
     Active Substance: NALOXONE
     Indication: Product used for unknown indication
     Dosage: UNK
     Route: 065
  16. AMINO ACIDS\DEXTROSE\ELECTROLYTES NOS [Concomitant]
     Active Substance: AMINO ACIDS\DEXTROSE\ELECTROLYTES NOS
     Indication: Cachexia
     Dosage: 1875 MILLILITER, ONCE A DAY (DAILY DOSE: 1875 ML MILLILITRE(S) EVERY DAY)
     Route: 042
     Dates: start: 20150907, end: 20150924

REACTIONS (20)
  - Arthralgia [Recovered/Resolved with Sequelae]
  - Pelvic pain [Recovered/Resolved with Sequelae]
  - Decreased appetite [Recovered/Resolved with Sequelae]
  - General physical health deterioration [Recovered/Resolved with Sequelae]
  - Nausea [Recovered/Resolved with Sequelae]
  - Diverticulitis [Recovered/Resolved with Sequelae]
  - Peritonitis [Recovered/Resolved with Sequelae]
  - Large intestine perforation [Recovered/Resolved with Sequelae]
  - Transaminases increased [Recovered/Resolved with Sequelae]
  - Gastritis [Recovered/Resolved with Sequelae]
  - Retroperitoneal haemorrhage [Recovered/Resolved with Sequelae]
  - Sepsis [Recovered/Resolved with Sequelae]
  - Pelvic haematoma [Recovered/Resolved with Sequelae]
  - Pyelonephritis [Recovered/Resolved with Sequelae]
  - Pyrexia [Recovered/Resolved with Sequelae]
  - Retroperitoneal haematoma [Recovered/Resolved with Sequelae]
  - Rhabdomyolysis [Recovered/Resolved with Sequelae]
  - Blood creatine phosphokinase increased [Recovered/Resolved with Sequelae]
  - Cachexia [Recovered/Resolved with Sequelae]
  - Metastases to central nervous system [Recovered/Resolved with Sequelae]

NARRATIVE: CASE EVENT DATE: 20150630
